FAERS Safety Report 15877913 (Version 1)
Quarter: 2019Q1

REPORT INFORMATION
  Report Type: Spontaneous
  Country: FR (occurrence: FR)
  Receive Date: 20190128
  Receipt Date: 20190128
  Transmission Date: 20190417
  Serious: Yes (Other)
  Sender: FDA-Public Use
  Company Number: FR-TEVA-2019-FR-1002934

PATIENT
  Age: 59 Year
  Sex: Male
  Weight: 90 kg

DRUGS (9)
  1. SPECIAFOLDINE [Concomitant]
     Active Substance: FOLIC ACID
  2. CANCIDAS [Concomitant]
     Active Substance: CASPOFUNGIN ACETATE
  3. NORADRENALINE [Concomitant]
     Active Substance: NOREPINEPHRINE
  4. VANCOMYCIN [Suspect]
     Active Substance: VANCOMYCIN
     Indication: BACTERIAL INFECTION
     Dosage: 2 GRAM DAILY;
     Route: 041
     Dates: start: 20181123, end: 20181128
  5. BRICANYL [Concomitant]
     Active Substance: TERBUTALINE SULFATE
  6. MORPHINE [Concomitant]
     Active Substance: MORPHINE
  7. ERYTHROMYCINE [Suspect]
     Active Substance: ERYTHROMYCIN
     Indication: BACTERIAL INFECTION
     Route: 041
     Dates: start: 20181121, end: 20181126
  8. CALCIPARINE [Concomitant]
     Active Substance: HEPARIN CALCIUM
  9. IMIPENEM MONOHYDRATE [Concomitant]

REACTIONS (1)
  - Generalised erythema [Recovered/Resolved]

NARRATIVE: CASE EVENT DATE: 20181127
